FAERS Safety Report 7553696-X (Version None)
Quarter: 2011Q2

REPORT INFORMATION
  Report Type: 
  Country: None (occurrence: None)
  Receive Date: 20110609
  Receipt Date: 20110527
  Transmission Date: 20111010
  Serious: Yes (Other)
  Sender: FDA-Public Use
  Company Number: 1000021438

PATIENT
  Age: 2 Year
  Sex: Female

DRUGS (1)
  1. ESCITALOPRAM OXALATE [Suspect]
     Dosage: 1 DROP IN A SMALL AMOUNT OF ORANGE JUICE, ORAL
     Route: 048
     Dates: start: 20110527, end: 20110527

REACTIONS (1)
  - ACCIDENTAL DRUG INTAKE BY CHILD [None]
